FAERS Safety Report 4990358-7 (Version None)
Quarter: 2006Q2

REPORT INFORMATION
  Report Type: 
  Country: None (occurrence: None)
  Receive Date: 20060427
  Receipt Date: 20060417
  Transmission Date: 20061013
  Serious: Yes (Hospitalization, Other)
  Sender: FDA-Public Use
  Company Number: 2006-03-1164

PATIENT
  Age: 60 Year
  Sex: Male
  Weight: 113 kg

DRUGS (16)
  1. TEMODAR [Suspect]
     Indication: GLIOBLASTOMA MULTIFORME
     Dosage: 480 MG QDX5D ORAL; 480 MGQDX5D ORAL; 480 MG QDX5D ORAL
     Route: 048
     Dates: start: 20060307, end: 20060311
  2. TEMODAR [Suspect]
     Indication: GLIOBLASTOMA MULTIFORME
     Dosage: 480 MG QDX5D ORAL; 480 MGQDX5D ORAL; 480 MG QDX5D ORAL
     Route: 048
     Dates: start: 20060307, end: 20060408
  3. TEMODAR [Suspect]
     Indication: GLIOBLASTOMA MULTIFORME
     Dosage: 480 MG QDX5D ORAL; 480 MGQDX5D ORAL; 480 MG QDX5D ORAL
     Route: 048
     Dates: start: 20060404, end: 20060408
  4. GLEEVEC [Suspect]
     Indication: GLIOBLASTOMA MULTIFORME
     Dosage: 600-400MG ORAL; 600 MG BIDX8D ORAL; 400 MG BIDX8D ORAL
     Route: 048
     Dates: start: 20060304, end: 20060311
  5. GLEEVEC [Suspect]
     Indication: GLIOBLASTOMA MULTIFORME
     Dosage: 600-400MG ORAL; 600 MG BIDX8D ORAL; 400 MG BIDX8D ORAL
     Route: 048
     Dates: start: 20060304, end: 20060408
  6. GLEEVEC [Suspect]
     Indication: GLIOBLASTOMA MULTIFORME
     Dosage: 600-400MG ORAL; 600 MG BIDX8D ORAL; 400 MG BIDX8D ORAL
     Route: 048
     Dates: start: 20060401, end: 20060408
  7. DILANTIN [Suspect]
     Indication: CONVULSION
  8. DECADRON [Concomitant]
  9. LISINOPRIL [Concomitant]
  10. METFORMIN [Concomitant]
  11. PEPCID [Concomitant]
  12. PROZAC [Concomitant]
  13. CELLCEPT [Concomitant]
  14. COENZYME Q10 [Concomitant]
  15. CELL-FORTE (IP-6TM/INOSITOL) [Concomitant]
  16. FISH OIL [Concomitant]

REACTIONS (25)
  - ANAPHYLACTIC REACTION [None]
  - ATELECTASIS [None]
  - BLOOD BILIRUBIN UNCONJUGATED INCREASED [None]
  - CARDIOMEGALY [None]
  - CHOLELITHIASIS [None]
  - DEHYDRATION [None]
  - DEPRESSION [None]
  - DIABETES MELLITUS NON-INSULIN-DEPENDENT [None]
  - DRUG DOSE OMISSION [None]
  - FLUID INTAKE REDUCED [None]
  - GALLBLADDER POLYP [None]
  - GRAND MAL CONVULSION [None]
  - HYPERBILIRUBINAEMIA [None]
  - HYPOTENSION [None]
  - NAUSEA [None]
  - NEPHRITIS INTERSTITIAL [None]
  - ORAL INTAKE REDUCED [None]
  - OSTEOARTHRITIS [None]
  - PYREXIA [None]
  - RASH [None]
  - SKIN EXFOLIATION [None]
  - SPLENOMEGALY [None]
  - URINE OUTPUT DECREASED [None]
  - URTICARIA [None]
  - VOMITING [None]
